FAERS Safety Report 17000551 (Version 1)
Quarter: 2019Q4

REPORT INFORMATION
  Report Type: Spontaneous
  Country: ZA (occurrence: ZA)
  Receive Date: 20191106
  Receipt Date: 20191106
  Transmission Date: 20200122
  Serious: Yes (Hospitalization, Other)
  Sender: FDA-Public Use
  Company Number: NVSC2019ZA022200

PATIENT
  Age: 57 Year
  Sex: Male

DRUGS (2)
  1. SANDOZ BEZAFIBRATE 400 [Suspect]
     Active Substance: BEZAFIBRATE
     Indication: BLOOD CHOLESTEROL
     Dosage: 400 MG, QD
     Route: 048
  2. CO-MIGROBEN [Suspect]
     Active Substance: HYDROCHLOROTHIAZIDE\VALSARTAN
     Indication: HYPERTENSION
     Dosage: 12.5 MG, QD
     Route: 048

REACTIONS (1)
  - Prostate cancer [Unknown]
